FAERS Safety Report 8912068 (Version 2)
Quarter: 2013Q1

REPORT INFORMATION
  Report Type: Spontaneous
  Country: US (occurrence: None)
  Receive Date: 20121113
  Receipt Date: 20130225
  Transmission Date: 20140127
  Serious: Yes (Death, Congenital Anomaly)
  Sender: FDA-Public Use
  Company Number: ADR-UNK-085

PATIENT
  Sex: 0

DRUGS (2)
  1. LAMIVUDINE AND STAVUDINE [Suspect]
     Indication: ACQUIRED IMMUNODEFICIENCY SYNDROME
     Dosage: 2 TAB/CAPS + ORAL
     Route: 048
     Dates: start: 20120810
  2. 17-LOPINAVIR+RITONAVIR (KALETRA?,ALUVIA?,LPV/R) [Concomitant]

REACTIONS (5)
  - Arnold-Chiari malformation [None]
  - Neural tube defect [None]
  - Abortion induced [None]
  - Umbilical cord vascular disorder [None]
  - Maternal exposure timing unspecified [None]
